FAERS Safety Report 8261681-8 (Version None)
Quarter: 2012Q2

REPORT INFORMATION
  Report Type: 
  Country: None (occurrence: None)
  Receive Date: 20120405
  Receipt Date: 20120405
  Transmission Date: 20120825
  Serious: Yes (Other)
  Sender: FDA-Public Use
  Company Number: None

PATIENT
  Age: 44 Year
  Sex: Male
  Weight: 86.182 kg

DRUGS (1)
  1. RADIESSE [Suspect]
     Dosage: 1.5CC
     Route: 059
     Dates: start: 20120319, end: 20120319

REACTIONS (1)
  - REACTION TO DRUG EXCIPIENTS [None]
